FAERS Safety Report 14204395 (Version 1)
Quarter: 2017Q4

REPORT INFORMATION
  Report Type: Spontaneous
  Country: JP (occurrence: JP)
  Receive Date: 20171120
  Receipt Date: 20171120
  Transmission Date: 20180321
  Serious: Yes (Other)
  Sender: FDA-Public Use
  Company Number: JP-JNJFOC-20171119243

PATIENT
  Sex: Male

DRUGS (2)
  1. RIUP [Suspect]
     Active Substance: MINOXIDIL
     Route: 061
  2. RIUP [Suspect]
     Active Substance: MINOXIDIL
     Indication: ANDROGENETIC ALOPECIA
     Route: 061

REACTIONS (1)
  - Prostate cancer [Not Recovered/Not Resolved]
